FAERS Safety Report 8149600-6 (Version None)
Quarter: 2012Q1

REPORT INFORMATION
  Report Type: 
  Country: None (occurrence: None)
  Receive Date: 20120218
  Receipt Date: 20111103
  Transmission Date: 20120608
  Serious: No
  Sender: FDA-Public Use
  Company Number: US-ALLERGAN-1114492US

PATIENT
  Age: 68 Year
  Sex: Female

DRUGS (3)
  1. BOTOX COSMETIC [Suspect]
     Indication: SKIN WRINKLING
     Dosage: 10 UNITS, SINGLE
     Route: 030
     Dates: start: 20111026, end: 20111026
  2. BOTOX COSMETIC [Suspect]
  3. BOTOX COSMETIC [Suspect]
     Dosage: 30 UNK, UNK
     Route: 030
     Dates: start: 20111012, end: 20111012

REACTIONS (1)
  - DRUG INEFFECTIVE [None]
